FAERS Safety Report 17885646 (Version 3)
Quarter: 2020Q3

REPORT INFORMATION
  Report Type: Report from Study
  Country: US (occurrence: US)
  Receive Date: 20200611
  Receipt Date: 20200826
  Transmission Date: 20201103
  Serious: Yes (Hospitalization)
  Sender: FDA-Public Use
  Company Number: US-ADAMAS PHARMA, LLC-2020ADA00962

PATIENT
  Age: 54 Year
  Sex: Female
  Weight: 55.33 kg

DRUGS (6)
  1. GOCOVRI [Suspect]
     Active Substance: AMANTADINE
     Indication: DYSKINESIA
     Dosage: 137 MG, 1X/DAY AT BEDTIME
     Route: 048
     Dates: start: 202004, end: 2020
  2. AZILECT [Concomitant]
     Active Substance: RASAGILINE MESYLATE
  3. GOCOVRI [Suspect]
     Active Substance: AMANTADINE
     Dosage: 274 MG, 1X/DAY AT BEDTIME
     Route: 048
     Dates: start: 2020
  4. CARBIDOPA/ LEVODOPA [Concomitant]
     Active Substance: CARBIDOPA\LEVODOPA
  5. NEUPRO [Concomitant]
     Active Substance: ROTIGOTINE
  6. VITAMIN B COMPLEX [Concomitant]
     Active Substance: CYANOCOBALAMIN\DEXPANTHENOL\NIACINAMIDE\PYRIDOXINE HYDROCHLORIDE\RIBOFLAVIN 5^-PHOSPHATE SODIUM\THIAMINE HYDROCHLORIDE\VITAMIN B COMPLEX

REACTIONS (6)
  - Insomnia [Not Recovered/Not Resolved]
  - Appendicitis [Recovering/Resolving]
  - Pain [Unknown]
  - Constipation [Not Recovered/Not Resolved]
  - Appendicectomy [Recovering/Resolving]
  - Peripheral swelling [Not Recovered/Not Resolved]

NARRATIVE: CASE EVENT DATE: 202004
